FAERS Safety Report 7788811-6 (Version None)
Quarter: 2011Q3

REPORT INFORMATION
  Report Type: 
  Country: None (occurrence: None)
  Receive Date: 20110928
  Receipt Date: 20110913
  Transmission Date: 20111222
  Serious: Yes (Other)
  Sender: FDA-Public Use
  Company Number: TPA2011A05790

PATIENT
  Age: 50 Year
  Sex: Female
  Weight: 113.3993 kg

DRUGS (7)
  1. ACTOS [Suspect]
     Dosage: 1 IN 1 D, PER  ORAL
     Route: 048
     Dates: start: 20080501, end: 20110912
  2. NOVOLOG [Concomitant]
  3. LISINOPRIL AND HYDROCHLOROTHIAZIDE [Concomitant]
  4. UNKNOWN ANTIDEPRESSANT [Concomitant]
  5. METOPROLOL TARTRATE [Concomitant]
  6. SIMVASTATIN [Concomitant]
  7. METFORMIN HCL [Concomitant]

REACTIONS (10)
  - SINUSITIS [None]
  - WEIGHT INCREASED [None]
  - FLUID RETENTION [None]
  - DECREASED APPETITE [None]
  - FALL [None]
  - POLLAKIURIA [None]
  - BLOOD GLUCOSE INCREASED [None]
  - FOOT FRACTURE [None]
  - VISUAL IMPAIRMENT [None]
  - FRACTURED COCCYX [None]
